FAERS Safety Report 9466251 (Version 1)
Quarter: 2013Q3

REPORT INFORMATION
  Report Type: Spontaneous
  Country: NL (occurrence: NL)
  Receive Date: 20130820
  Receipt Date: 20130820
  Transmission Date: 20140515
  Serious: Yes (Other)
  Sender: FDA-Public Use
  Company Number: NL-PFIZER INC-2013240670

PATIENT
  Age: 32 Year
  Sex: Male

DRUGS (3)
  1. LYRICA [Suspect]
     Indication: GENERALISED ANXIETY DISORDER
     Dosage: 75 MG, 1X/DAY
     Dates: start: 20130813, end: 20130817
  2. SEROQUEL [Concomitant]
  3. DIAZEPAM [Concomitant]
     Dosage: 10 MG, UNK

REACTIONS (2)
  - Convulsion [Unknown]
  - Panic attack [Unknown]
